FAERS Safety Report 7817057-8 (Version None)
Quarter: 2011Q4

REPORT INFORMATION
  Report Type: 
  Country: None (occurrence: None)
  Receive Date: 20111017
  Receipt Date: 20111003
  Transmission Date: 20120403
  Serious: Yes (Hospitalization, Other)
  Sender: FDA-Public Use
  Company Number: PHFR2011IE03174

PATIENT
  Sex: Female

DRUGS (14)
  1. ZOPICLONE [Concomitant]
     Dosage: 7.5 MG NOCTE PRN
  2. CLOZARIL [Suspect]
     Route: 048
     Dates: start: 20100518
  3. ASPIRIN [Concomitant]
     Dosage: 75 MG, QD
  4. CLOZARIL [Suspect]
     Dosage: 500 MG
  5. PAROXETINE HCL [Concomitant]
     Dosage: 10 MG
     Route: 065
  6. LORAZEPAM [Concomitant]
     Dosage: 0.5 MG, TID
     Route: 048
     Dates: end: 20110506
  7. CLOZARIL [Suspect]
     Dosage: 300 MG
     Dates: start: 20110623
  8. PAROXETINE HCL [Concomitant]
     Indication: DEPRESSION
     Dosage: 30 MG, UNK
     Route: 048
  9. LEXAPRO [Concomitant]
     Dosage: 10 MG, QD
  10. CLOZARIL [Suspect]
     Indication: SCHIZOPHRENIA
     Route: 048
     Dates: start: 20051027
  11. PAROXETINE HCL [Concomitant]
     Dosage: 20 MG
     Route: 065
  12. BISOPROLOL [Concomitant]
     Dosage: 2.5 MG, QD
  13. BENZODIAZEPINES [Concomitant]
     Route: 065
  14. ENOXAPARIN SODIUM [Concomitant]
     Dosage: 1 MG, BID

REACTIONS (10)
  - SOMNOLENCE [None]
  - ANTIPSYCHOTIC DRUG LEVEL INCREASED [None]
  - CONFUSIONAL STATE [None]
  - AGITATION [None]
  - LOSS OF CONSCIOUSNESS [None]
  - HYPERVENTILATION [None]
  - MYOCARDIAL ISCHAEMIA [None]
  - APHASIA [None]
  - DISORIENTATION [None]
  - DROOLING [None]
